FAERS Safety Report 11170207 (Version 2)
Quarter: 2015Q3

REPORT INFORMATION
  Report Type: Spontaneous
  Country: US (occurrence: US)
  Receive Date: 20150608
  Receipt Date: 20150821
  Transmission Date: 20151125
  Serious: Yes (Hospitalization, Other)
  Sender: FDA-Public Use
  Company Number: US-PFIZER INC-2015185071

PATIENT
  Sex: Female

DRUGS (6)
  1. IBRANCE [Suspect]
     Active Substance: PALBOCICLIB
     Indication: BREAST CANCER METASTATIC
     Dosage: 125 MG, CYCLIC, (ONCE DAILY FOR 21 DAYS, OFF 7 DAYS)
     Route: 048
     Dates: start: 20110305, end: 20150511
  2. OMEPRAZOLE. [Concomitant]
     Active Substance: OMEPRAZOLE
     Indication: GASTROOESOPHAGEAL REFLUX DISEASE
     Dosage: 20 MG, 2X/DAY
     Route: 048
  3. IBRANCE [Suspect]
     Active Substance: PALBOCICLIB
     Dosage: 125 MG, CYCLIC(21 DAYS, OFF 7 DAYS ON )
     Route: 048
     Dates: start: 20150413
  4. IBRANCE [Suspect]
     Active Substance: PALBOCICLIB
     Dosage: 100 MG, CYCLIC (DAILY X 21 DAYS, OFF 7 DAYS)
  5. FASLODEX [Concomitant]
     Active Substance: FULVESTRANT
     Indication: BREAST CANCER
     Dosage: UNK
     Dates: start: 20150302, end: 20150427
  6. RANITIDINE [Concomitant]
     Active Substance: RANITIDINE\RANITIDINE HYDROCHLORIDE
     Indication: GASTROOESOPHAGEAL REFLUX DISEASE
     Dosage: 150 MG, 1X/DAY, (NIGHTLY)
     Route: 048

REACTIONS (14)
  - Anaemia [Unknown]
  - Tremor [Unknown]
  - Urinary tract infection [Recovered/Resolved]
  - Thrombocytopenia [Unknown]
  - Fatigue [Unknown]
  - Pyrexia [Unknown]
  - Flushing [Unknown]
  - Neutrophil count decreased [Unknown]
  - Dysuria [Unknown]
  - Disease progression [Unknown]
  - Breast cancer metastatic [Unknown]
  - Malaise [Unknown]
  - Sepsis [Recovered/Resolved]
  - Chills [Unknown]

NARRATIVE: CASE EVENT DATE: 201503
